FAERS Safety Report 20194788 (Version 1)
Quarter: 2021Q4

REPORT INFORMATION
  Report Type: Spontaneous
  Country: US (occurrence: None)
  Receive Date: 20211216
  Receipt Date: 20211216
  Transmission Date: 20220303
  Serious: Yes (Other)
  Sender: FDA-Public Use
  Company Number: None

PATIENT
  Age: 77 Year
  Sex: Male
  Weight: 90.2 kg

DRUGS (1)
  1. YESCARTA [Suspect]
     Active Substance: AXICABTAGENE CILOLEUCEL
     Indication: Follicular lymphoma
     Dosage: OTHER FREQUENCY : ONCE;?
     Route: 042
     Dates: start: 20211018, end: 20211018

REACTIONS (5)
  - Cough [None]
  - Arthralgia [None]
  - Cytokine release syndrome [None]
  - Diarrhoea [None]
  - Atrial fibrillation [None]

NARRATIVE: CASE EVENT DATE: 20211020
